FAERS Safety Report 8049699-1 (Version None)
Quarter: 2012Q1

REPORT INFORMATION
  Report Type: 
  Country: None (occurrence: None)
  Receive Date: 20120117
  Receipt Date: 20120112
  Transmission Date: 20120608
  Serious: Yes (Death, Hospitalization)
  Sender: FDA-Public Use
  Company Number: US-GLAXOSMITHKLINE-B0730662A

PATIENT
  Age: 83 Year
  Sex: Male
  Weight: 79.5 kg

DRUGS (6)
  1. TOPROL-XL [Concomitant]
  2. VYTORIN [Concomitant]
  3. GLIPIZIDE [Concomitant]
  4. VYTORIN [Concomitant]
  5. AVANDIA [Suspect]
     Indication: DIABETES MELLITUS
     Dosage: 4MG PER DAY
     Route: 048
     Dates: start: 20080101, end: 20090901
  6. ATENOLOL [Concomitant]

REACTIONS (3)
  - SUDDEN CARDIAC DEATH [None]
  - CARDIAC FAILURE CONGESTIVE [None]
  - AORTIC STENOSIS [None]
